FAERS Safety Report 9096202 (Version 1)
Quarter: 2013Q1

REPORT INFORMATION
  Report Type: Report from Study
  Country: GB (occurrence: GB)
  Receive Date: 20130207
  Receipt Date: 20130207
  Transmission Date: 20140127
  Serious: Yes (Hospitalization)
  Sender: FDA-Public Use
  Company Number: GB-ROCHE-1178045

PATIENT
  Sex: Male
  Weight: 86 kg

DRUGS (2)
  1. TOCILIZUMAB [Suspect]
     Indication: RHEUMATOID ARTHRITIS
     Route: 065
     Dates: start: 20120227, end: 20120814
  2. LEFLUNOMIDE [Concomitant]

REACTIONS (2)
  - Upper gastrointestinal haemorrhage [Unknown]
  - Haematochezia [Unknown]
